FAERS Safety Report 24295967 (Version 1)
Quarter: 2024Q3

REPORT INFORMATION
  Report Type: Spontaneous
  Country: IN (occurrence: IN)
  Receive Date: 20240909
  Receipt Date: 20240909
  Transmission Date: 20241016
  Serious: Yes (Other)
  Sender: SHILPA MEDICARE
  Company Number: IN-KOANAAP-SML-IN-2024-00894

PATIENT
  Age: 46 Year
  Sex: Male

DRUGS (1)
  1. IMATINIB [Suspect]
     Active Substance: IMATINIB
     Indication: Product used for unknown indication

REACTIONS (1)
  - Iron overload [Unknown]
